FAERS Safety Report 22675815 (Version 5)
Quarter: 2023Q4

REPORT INFORMATION
  Report Type: Report from Study
  Country: US (occurrence: US)
  Receive Date: 20230706
  Receipt Date: 20231204
  Transmission Date: 20240110
  Serious: Yes (Other)
  Sender: FDA-Public Use
  Company Number: US-BoehringerIngelheim-2022-BI-184106

PATIENT
  Age: 56 Year
  Sex: Male
  Weight: 65.8 kg

DRUGS (4)
  1. OFEV [Suspect]
     Active Substance: NINTEDANIB
     Indication: Idiopathic pulmonary fibrosis
     Route: 048
     Dates: start: 20220718
  2. OFEV [Suspect]
     Active Substance: NINTEDANIB
     Dosage: LOT: 105428, 105429, 105431,107018
     Route: 048
  3. TYVASO [Concomitant]
     Active Substance: TREPROSTINIL
     Indication: Pulmonary arterial hypertension
     Dosage: LOT NO. 000321P (EXPIRATORY DATE 30-APR-2024)?LOT NO. 000355P (EXPIRATORY DATE 31-AUG-2024)
     Route: 055
     Dates: start: 20221011, end: 202306
  4. TYVASO [Concomitant]
     Active Substance: TREPROSTINIL
     Dates: start: 20231005

REACTIONS (24)
  - Dyspnoea at rest [Unknown]
  - Haematochezia [Unknown]
  - Liver function test increased [Unknown]
  - Asthenia [Unknown]
  - Gastrointestinal motility disorder [Not Recovered/Not Resolved]
  - Pain [Not Recovered/Not Resolved]
  - Diarrhoea [Unknown]
  - Nausea [Unknown]
  - Cough [Unknown]
  - Weight decreased [Unknown]
  - Dizziness [Unknown]
  - Feeling abnormal [Unknown]
  - Abdominal pain [Not Recovered/Not Resolved]
  - Vomiting [Unknown]
  - Chronic obstructive pulmonary disease [Unknown]
  - Oropharyngeal pain [Unknown]
  - Sneezing [Unknown]
  - Emphysema [Unknown]
  - Night sweats [Recovered/Resolved]
  - Disturbance in attention [Unknown]
  - Oedema peripheral [Recovered/Resolved]
  - Gastrointestinal motility disorder [Not Recovered/Not Resolved]
  - Decreased appetite [Unknown]
  - Dyspnoea [Unknown]

NARRATIVE: CASE EVENT DATE: 20220101
